FAERS Safety Report 5337360-3 (Version None)
Quarter: 2007Q2

REPORT INFORMATION
  Report Type: 
  Country: None (occurrence: None)
  Receive Date: 20070529
  Receipt Date: 20070516
  Transmission Date: 20071010
  Serious: Yes (Hospitalization, Other)
  Sender: FDA-Public Use
  Company Number: US-SHR-US-2007-011523

PATIENT
  Sex: Female

DRUGS (2)
  1. BETASERON [Suspect]
     Dosage: 8 MIU, EVERY 2D
     Route: 058
     Dates: start: 19941227, end: 20060701
  2. INTERFERON [Suspect]
     Dosage: UNK, 2X/DAY

REACTIONS (2)
  - INTRAOCULAR MELANOMA [None]
  - PYREXIA [None]
